FAERS Safety Report 9729505 (Version 1)
Quarter: 2013Q4

REPORT INFORMATION
  Report Type: Spontaneous
  Country: US (occurrence: US)
  Receive Date: 20131204
  Receipt Date: 20131204
  Transmission Date: 20140711
  Serious: No
  Sender: FDA-Public Use
  Company Number: US-GILEAD-2009-0022046

PATIENT
  Sex: Female
  Weight: 54.88 kg

DRUGS (7)
  1. LETAIRIS [Suspect]
     Indication: PULMONARY ARTERIAL HYPERTENSION
     Route: 048
     Dates: start: 20090427
  2. REVATIO [Concomitant]
  3. ATENOLOL [Concomitant]
  4. LIPITOR [Concomitant]
  5. TEMAZEPAM [Concomitant]
  6. PRILOSEC [Concomitant]
  7. TYLENOL W/CODEINE [Concomitant]

REACTIONS (3)
  - Abdominal discomfort [Unknown]
  - Headache [Unknown]
  - Feeling of body temperature change [Unknown]
